FAERS Safety Report 8407176-X (Version None)
Quarter: 2012Q2

REPORT INFORMATION
  Report Type: 
  Country: None (occurrence: None)
  Receive Date: 20120604
  Receipt Date: 20120528
  Transmission Date: 20120825
  Serious: Yes (Other)
  Sender: FDA-Public Use
  Company Number: ES-UCBSA-058280

PATIENT
  Sex: Male

DRUGS (2)
  1. VIMPAT [Suspect]
     Indication: EPILEPSY
     Dosage: TOTAL DAILY DOSE: 300 MG
     Route: 048
     Dates: start: 20120301
  2. TEMODAL [Suspect]
     Dosage: UNKNOWN DOSE

REACTIONS (1)
  - THROMBOCYTOPENIA [None]
